FAERS Safety Report 18974137 (Version 1)
Quarter: 2021Q1

REPORT INFORMATION
  Report Type: Spontaneous
  Country: FR (occurrence: FR)
  Receive Date: 20210305
  Receipt Date: 20210305
  Transmission Date: 20210420
  Serious: Yes (Hospitalization, Other)
  Sender: FDA-Public Use
  Company Number: FR-ANIPHARMA-2021-FR-000053

PATIENT
  Age: 67 Year
  Sex: Female
  Weight: 45 kg

DRUGS (9)
  1. ZOPICLONE [Concomitant]
     Active Substance: ZOPICLONE
     Dosage: UNKNOWN DOSE AND FREQUENCY
     Route: 065
  2. NOVONORM [Suspect]
     Active Substance: REPAGLINIDE
     Dosage: 1.5 MG QD
     Route: 048
     Dates: end: 20201227
  3. VELMETIA [Suspect]
     Active Substance: METFORMIN\SITAGLIPTIN
     Dosage: 50/1000 MG UNKNOWN DOSE DAILY
     Route: 048
     Dates: end: 20201227
  4. GLUCOPHAGE [Suspect]
     Active Substance: METFORMIN HYDROCHLORIDE
     Dosage: UNKNOWN DOSE DAILY
     Route: 048
     Dates: end: 20201227
  5. ROSUVASTATIN. [Concomitant]
     Active Substance: ROSUVASTATIN
     Route: 065
  6. ALPRAZOLAM. [Concomitant]
     Active Substance: ALPRAZOLAM
     Route: 065
  7. ATACAND [Suspect]
     Active Substance: CANDESARTAN CILEXETIL
     Indication: HYPERTENSION
     Dosage: 4 MG QD
     Route: 048
     Dates: end: 20201227
  8. TRAVATAN [Concomitant]
     Active Substance: TRAVOPROST
     Dosage: UNKNOWN DOSE AND FREQUENCY
     Route: 065
  9. KARDEGIC [Suspect]
     Active Substance: ASPIRIN DL-LYSINE
     Dosage: UNKNOWN DOSE AND FREQUENCY
     Route: 065

REACTIONS (5)
  - Lactic acidosis [Unknown]
  - Dehydration [Unknown]
  - Hypotension [Unknown]
  - Hypoglycaemia [Unknown]
  - Acute kidney injury [Recovered/Resolved]

NARRATIVE: CASE EVENT DATE: 20201227
